FAERS Safety Report 16696396 (Version 1)
Quarter: 2019Q3

REPORT INFORMATION
  Report Type: Spontaneous
  Country: US (occurrence: US)
  Receive Date: 20190813
  Receipt Date: 20190813
  Transmission Date: 20191004
  Serious: Yes (Other)
  Sender: FDA-Public Use
  Company Number: US-PFIZER INC-2019337297

PATIENT
  Age: 35 Month
  Sex: Male

DRUGS (7)
  1. TOPOTECAN HYDROCHLORIDE. [Suspect]
     Active Substance: TOPOTECAN HYDROCHLORIDE
     Dosage: UNK (INTRAVITREAL) (WITH ADDITIONAL LASER TO THE TUMOR)
  2. MELPHALAN. [Suspect]
     Active Substance: MELPHALAN
     Dosage: 20 UG, UNK (INTRAVITREAL INJECTIONS) (WITH CRYOTHERAPY TO THE INJECTION SITE)
  3. TOPOTECAN HYDROCHLORIDE. [Suspect]
     Active Substance: TOPOTECAN HYDROCHLORIDE
     Dosage: 20 UG, UNK (INTRAVITREAL INJECTIONS) (WITH CRYOTHERAPY TO THE INJECTION SITE)
  4. MELPHALAN. [Suspect]
     Active Substance: MELPHALAN
     Dosage: 20 UG, UNK (INTRAVITREAL)
  5. MELPHALAN. [Suspect]
     Active Substance: MELPHALAN
     Dosage: UNK (INTRAVITREAL) (WITH ADDITIONAL LASER TO THE TUMOR)
  6. TOPOTECAN HYDROCHLORIDE. [Suspect]
     Active Substance: TOPOTECAN HYDROCHLORIDE
     Indication: RETINOBLASTOMA
     Dosage: 0.4 MG, UNK
     Route: 013
  7. MELPHALAN. [Suspect]
     Active Substance: MELPHALAN
     Indication: RETINOBLASTOMA
     Dosage: 5 MG, UNK
     Route: 013

REACTIONS (5)
  - Drug effective for unapproved indication [Unknown]
  - Product use issue [Unknown]
  - Retinal detachment [Recovered/Resolved]
  - Retinal toxicity [Recovered/Resolved]
  - Off label use [Unknown]
